FAERS Safety Report 8987142 (Version 2)
Quarter: 2013Q1

REPORT INFORMATION
  Report Type: Spontaneous
  Country: IT (occurrence: IT)
  Receive Date: 20121227
  Receipt Date: 20130131
  Transmission Date: 20140127
  Serious: Yes (Hospitalization)
  Sender: FDA-Public Use
  Company Number: IT-009507513-1212ITA009656

PATIENT
  Age: 77 Year
  Sex: Male

DRUGS (5)
  1. NEO-LOTAN [Suspect]
     Indication: HYPERTENSION
     Dosage: 12.5 MG, QD
     Route: 048
     Dates: start: 20090101, end: 20121005
  2. LOSEC [Suspect]
     Indication: PROPHYLAXIS AGAINST GASTROINTESTINAL ULCER
     Dosage: 10 MG, QD
     Route: 048
     Dates: start: 20090101, end: 20121005
  3. SPIRIVA [Concomitant]
     Dosage: UNK
     Route: 055
  4. DELTACORTENE [Concomitant]
     Dosage: UNK
     Route: 048
  5. ASPIRIN [Concomitant]

REACTIONS (2)
  - Hyponatraemia [Recovering/Resolving]
  - Asthenia [Recovering/Resolving]
